FAERS Safety Report 18587409 (Version 1)
Quarter: 2020Q4

REPORT INFORMATION
  Report Type: Spontaneous
  Country: GB (occurrence: GB)
  Receive Date: 20201207
  Receipt Date: 20201207
  Transmission Date: 20210114
  Serious: Yes (Other)
  Sender: FDA-Public Use
  Company Number: GB-TEVA-2020-GB-1855068

PATIENT
  Age: 22 Year
  Sex: Female
  Weight: 61 kg

DRUGS (1)
  1. FLUCONAZOLE. [Suspect]
     Active Substance: FLUCONAZOLE
     Dosage: UNIT DOSE : 50 MG
     Route: 048
     Dates: start: 2010, end: 2013

REACTIONS (5)
  - Scar [Unknown]
  - Skin warm [Unknown]
  - Swollen tongue [Unknown]
  - Swelling [Recovered/Resolved]
  - Pruritus [Recovered/Resolved]
